FAERS Safety Report 6796054-8 (Version None)
Quarter: 2010Q2

REPORT INFORMATION
  Report Type: 
  Country: None (occurrence: None)
  Receive Date: 20100625
  Receipt Date: 20100617
  Transmission Date: 20101027
  Serious: Yes (Death)
  Sender: FDA-Public Use
  Company Number: CA-AMGEN-QUU419203

PATIENT

DRUGS (1)
  1. VECTIBIX [Suspect]
     Indication: COLORECTAL CANCER

REACTIONS (1)
  - PULMONARY EMBOLISM [None]
